FAERS Safety Report 23779809 (Version 1)
Quarter: 2024Q2

REPORT INFORMATION
  Report Type: Spontaneous
  Country: US (occurrence: US)
  Receive Date: 20240424
  Receipt Date: 20240424
  Transmission Date: 20240716
  Serious: Yes (Other)
  Sender: FDA-Public Use
  Company Number: US-BRISTOL-MYERS SQUIBB COMPANY-2024-059142

PATIENT
  Age: 49 Year
  Sex: Female

DRUGS (3)
  1. ZEPOSIA [Suspect]
     Active Substance: OZANIMOD HYDROCHLORIDE
     Indication: Multiple sclerosis
     Dosage: ZEPOSIA 28-DAY STARTER KIT. FREQUENCY: QD DAYS 1-4, 5-7 THEN QD THEREAFTER
     Route: 048
  2. ZEPOSIA [Suspect]
     Active Substance: OZANIMOD HYDROCHLORIDE
     Dosage: ZEPOSIA 28-DAY STARTER KIT. FREQUENCY: QD DAYS 1-4, 5-7 THEN QD THEREAFTER
     Route: 048
  3. ZEPOSIA [Suspect]
     Active Substance: OZANIMOD HYDROCHLORIDE
     Dosage: ZEPOSIA 28-DAY STARTER KIT. FREQUENCY: QD DAYS 1-4, 5-7 THEN QD THEREAFTER
     Route: 048

REACTIONS (1)
  - Drug interaction [Unknown]
